FAERS Safety Report 20793373 (Version 1)
Quarter: 2022Q2

REPORT INFORMATION
  Report Type: Spontaneous
  Country: CN (occurrence: CN)
  Receive Date: 20220506
  Receipt Date: 20220506
  Transmission Date: 20220721
  Serious: Yes (Other)
  Sender: FDA-Public Use
  Company Number: CN-NOVARTISPH-NVSC2022CN100109

PATIENT
  Sex: Male

DRUGS (5)
  1. DABRAFENIB [Suspect]
     Active Substance: DABRAFENIB
     Indication: Gastrointestinal carcinoma
     Dosage: 150 MG, BID
     Route: 048
     Dates: start: 20220411
  2. DABRAFENIB [Suspect]
     Active Substance: DABRAFENIB
     Indication: Product use in unapproved indication
  3. TRAMETINIB [Suspect]
     Active Substance: TRAMETINIB
     Indication: Gastrointestinal carcinoma
     Dosage: 2 MG, QD
     Route: 048
     Dates: start: 20220401
  4. TRAMETINIB [Suspect]
     Active Substance: TRAMETINIB
     Indication: Product use in unapproved indication
  5. CETUXIMAB [Concomitant]
     Active Substance: CETUXIMAB
     Indication: Product used for unknown indication
     Dosage: UNK
     Route: 065

REACTIONS (2)
  - Rash [Recovering/Resolving]
  - Product use in unapproved indication [Unknown]

NARRATIVE: CASE EVENT DATE: 20220411
